FAERS Safety Report 13389734 (Version 9)
Quarter: 2019Q4

REPORT INFORMATION
  Report Type: Report from Study
  Country: ES (occurrence: ES)
  Receive Date: 20170331
  Receipt Date: 20191227
  Transmission Date: 20200122
  Serious: Yes (Hospitalization)
  Sender: FDA-Public Use
  Company Number: ES-ROCHE-1905878

PATIENT
  Age: 64 Year
  Sex: Male
  Weight: 71 kg

DRUGS (38)
  1. RECTOGESIC [GLYCERYL TRINITRATE] [Concomitant]
     Active Substance: NITROGLYCERIN
     Indication: PROPHYLAXIS
     Dosage: 1 APPLICATION
     Route: 061
  2. HIDROALTESONA [Concomitant]
     Active Substance: HYDROCORTISONE
     Dosage: 40MG-0-10MG
     Route: 048
     Dates: start: 20150803, end: 20150809
  3. HIDROALTESONA [Concomitant]
     Active Substance: HYDROCORTISONE
     Route: 048
     Dates: start: 20151208, end: 20151222
  4. POLARAMINE [Concomitant]
     Active Substance: DEXCHLORPHENIRAMINE MALEATE
     Indication: PRURITUS
     Route: 048
     Dates: start: 20151203
  5. BUDESONIDE. [Concomitant]
     Active Substance: BUDESONIDE
     Route: 055
     Dates: start: 20160126
  6. MITOTANE [Concomitant]
     Active Substance: MITOTANE
     Indication: ADRENAL GLAND CANCER
     Route: 048
     Dates: start: 20150521, end: 20150720
  7. HIDROALTESONA [Concomitant]
     Active Substance: HYDROCORTISONE
     Route: 048
     Dates: start: 20150824, end: 20150929
  8. HIDROALTESONA [Concomitant]
     Active Substance: HYDROCORTISONE
     Route: 048
     Dates: start: 20151007, end: 20151013
  9. HIDROALTESONA [Concomitant]
     Active Substance: HYDROCORTISONE
     Route: 048
     Dates: start: 20170202, end: 20170303
  10. PARACETAMOL [Concomitant]
     Active Substance: ACETAMINOPHEN
     Indication: CATARRH
     Route: 048
     Dates: start: 20151231, end: 20160204
  11. RESINCALCIO [Concomitant]
     Active Substance: CALCIUM POLYSTYRENE SULFONATE
     Route: 048
     Dates: start: 20160609, end: 20160629
  12. RESINCALCIO [Concomitant]
     Active Substance: CALCIUM POLYSTYRENE SULFONATE
     Route: 048
     Dates: start: 20160701, end: 20161013
  13. CALCIUM GLUCONATE. [Concomitant]
     Active Substance: CALCIUM GLUCONATE
     Indication: CHRONIC KIDNEY DISEASE
     Dosage: 1 AMPULE
     Route: 042
     Dates: start: 20161114, end: 20161114
  14. SIMVASTATINE [Concomitant]
     Active Substance: SIMVASTATIN
     Route: 048
  15. CETIRIZINE [Concomitant]
     Active Substance: CETIRIZINE HYDROCHLORIDE
     Indication: PRURITUS
     Route: 048
     Dates: start: 20151112, end: 20151202
  16. RESINCALCIO [Concomitant]
     Active Substance: CALCIUM POLYSTYRENE SULFONATE
     Indication: HYPERKALAEMIA
     Route: 048
     Dates: start: 20160519, end: 20160608
  17. BICARBONATE [Concomitant]
     Active Substance: SODIUM BICARBONATE
     Route: 048
     Dates: start: 20170202, end: 20170207
  18. INSULIN [Concomitant]
     Active Substance: INSULIN NOS
     Indication: CHRONIC KIDNEY DISEASE
     Route: 042
     Dates: start: 20161114, end: 20161114
  19. ATEZOLIZUMAB. [Suspect]
     Active Substance: ATEZOLIZUMAB
     Indication: NEOPLASM
     Dosage: THE MOST RECENT DOSE OF ATEZOLIZUMAB PRIOR TO THE ONSET OF THE EVENT WAS ON 12/JAN/2017 (START TIME
     Route: 042
     Dates: start: 20150820
  20. AZITROMYCINE [Concomitant]
     Active Substance: AZITHROMYCIN
     Indication: INFECTION PROPHYLAXIS
     Route: 048
     Dates: start: 20151207, end: 20151209
  21. OMEPRAZOL [OMEPRAZOLE] [Concomitant]
     Active Substance: OMEPRAZOLE
     Indication: GASTRITIS PROPHYLAXIS
     Route: 048
  22. HIDROALTESONA [Concomitant]
     Active Substance: HYDROCORTISONE
     Indication: HYPONATRAEMIA
     Route: 048
     Dates: start: 20150810, end: 20150823
  23. EUTIROX [Concomitant]
     Active Substance: LEVOTHYROXINE SODIUM
     Route: 048
     Dates: start: 20151223, end: 20160112
  24. BICARBONATE [Concomitant]
     Active Substance: SODIUM BICARBONATE
     Indication: BLOOD CREATININE INCREASED
     Route: 042
     Dates: start: 20161114, end: 20161114
  25. INSULIN [Concomitant]
     Active Substance: INSULIN NOS
     Route: 042
     Dates: start: 20161114, end: 20161114
  26. BICARBONATE [Concomitant]
     Active Substance: SODIUM BICARBONATE
     Indication: CHRONIC KIDNEY DISEASE
     Dosage: MOLAR
     Route: 065
     Dates: start: 20161024, end: 20161104
  27. HIDROALTESONA [Concomitant]
     Active Substance: HYDROCORTISONE
     Indication: ADRENAL GLAND CANCER
     Dosage: 40MG-0-20MG
     Route: 048
     Dates: start: 20140904, end: 20150802
  28. HIDROALTESONA [Concomitant]
     Active Substance: HYDROCORTISONE
     Route: 048
     Dates: start: 20150930, end: 20151006
  29. HIDROALTESONA [Concomitant]
     Active Substance: HYDROCORTISONE
     Dosage: 20-20-10
     Route: 048
     Dates: start: 20170304, end: 20170308
  30. EUTIROX [Concomitant]
     Active Substance: LEVOTHYROXINE SODIUM
     Indication: HYPOTHYROIDISM
     Route: 048
     Dates: start: 20151203, end: 20151222
  31. PARACETAMOL [Concomitant]
     Active Substance: ACETAMINOPHEN
     Route: 048
  32. METILPREDNISOLONE [Concomitant]
     Active Substance: METHYLPREDNISOLONE
     Route: 042
     Dates: start: 20161102, end: 20161104
  33. HIDROALTESONA [Concomitant]
     Active Substance: HYDROCORTISONE
     Route: 048
     Dates: start: 20151112, end: 20151207
  34. HIDROALTESONA [Concomitant]
     Active Substance: HYDROCORTISONE
     Route: 048
     Dates: start: 20151223
  35. HIDROALTESONA [Concomitant]
     Active Substance: HYDROCORTISONE
     Dosage: 20-20-20
     Route: 048
     Dates: start: 20170309, end: 20170313
  36. EUTIROX [Concomitant]
     Active Substance: LEVOTHYROXINE SODIUM
     Route: 048
     Dates: start: 20160113
  37. RESINCALCIO [Concomitant]
     Active Substance: CALCIUM POLYSTYRENE SULFONATE
     Route: 048
     Dates: start: 20160519, end: 20160630
  38. METILPREDNISOLONE [Concomitant]
     Active Substance: METHYLPREDNISOLONE
     Indication: CHRONIC KIDNEY DISEASE
     Route: 048
     Dates: start: 20161021, end: 20161101

REACTIONS (3)
  - Hyperkalaemia [Recovered/Resolved]
  - Chronic kidney disease [Recovering/Resolving]
  - Renal impairment [Recovering/Resolving]

NARRATIVE: CASE EVENT DATE: 20160518
